FAERS Safety Report 16361640 (Version 4)
Quarter: 2019Q3

REPORT INFORMATION
  Report Type: Spontaneous
  Country: ES (occurrence: ES)
  Receive Date: 20190528
  Receipt Date: 20190826
  Transmission Date: 20191004
  Serious: Yes (Hospitalization)
  Sender: FDA-Public Use
  Company Number: PHHY2019ES117535

PATIENT
  Age: 75 Year
  Sex: Male

DRUGS (16)
  1. MYCOPHENOLATE MOFETIL. [Suspect]
     Active Substance: MYCOPHENOLATE MOFETIL
     Indication: RENAL TRANSPLANT
     Dosage: 750 MG, QD
     Route: 065
  2. MYCOPHENOLATE MOFETIL. [Suspect]
     Active Substance: MYCOPHENOLATE MOFETIL
     Indication: IMMUNOSUPPRESSANT DRUG THERAPY
  3. QUETIAPINE. [Concomitant]
     Active Substance: QUETIAPINE
     Indication: HALLUCINATION
     Dosage: 50 MG, QD
     Route: 065
  4. TACROLIMUS. [Suspect]
     Active Substance: TACROLIMUS
     Indication: RENAL TRANSPLANT
     Dosage: 5.5 MG, QD
     Route: 065
  5. CARBIDOPA. [Concomitant]
     Active Substance: CARBIDOPA
     Dosage: 100 MG, QD
     Route: 065
  6. AMANTADINE. [Concomitant]
     Active Substance: AMANTADINE HYDROCHLORIDE
     Indication: PARKINSON^S DISEASE
     Dosage: 40 MG, QD
     Route: 065
  7. CARBIDOPA. [Concomitant]
     Active Substance: CARBIDOPA
     Indication: PARKINSON^S DISEASE
     Dosage: 200 MG, QD
     Route: 065
  8. TACROLIMUS. [Suspect]
     Active Substance: TACROLIMUS
     Indication: IMMUNOSUPPRESSANT DRUG THERAPY
  9. AMLODIPINE [Concomitant]
     Active Substance: AMLODIPINE BESYLATE
     Indication: HYPERTENSION
     Dosage: UNK
     Route: 065
  10. ROPINIROLE. [Concomitant]
     Active Substance: ROPINIROLE
     Indication: PARKINSON^S DISEASE
     Dosage: 16 MG, QD
     Route: 065
  11. CARBIDOPA. [Concomitant]
     Active Substance: CARBIDOPA
     Dosage: 75 MG, QD
     Route: 065
  12. QUETIAPINE. [Concomitant]
     Active Substance: QUETIAPINE
     Dosage: 100 MG, QD
     Route: 065
  13. LEVODOPA [Concomitant]
     Active Substance: LEVODOPA
     Indication: PARKINSON^S DISEASE
     Dosage: 800 MG, QD
     Route: 065
  14. LEVODOPA [Concomitant]
     Active Substance: LEVODOPA
     Dosage: 400 MG, QD
     Route: 065
  15. LEVODOPA [Concomitant]
     Active Substance: LEVODOPA
     Dosage: 300 MG, QD
     Route: 065
  16. ENTACAPONE. [Concomitant]
     Active Substance: ENTACAPONE
     Indication: PARKINSON^S DISEASE
     Dosage: 600 MG, QD
     Route: 065

REACTIONS (15)
  - Agitation [Recovered/Resolved]
  - Aggression [Recovered/Resolved]
  - Nephropathy toxic [Recovered/Resolved]
  - Mood altered [Recovered/Resolved]
  - Consciousness fluctuating [Recovered/Resolved]
  - Disturbance in attention [Recovered/Resolved]
  - Psychotic disorder [Recovered/Resolved]
  - Disorientation [Recovered/Resolved]
  - Headache [Recovered/Resolved]
  - Posterior reversible encephalopathy syndrome [Recovered/Resolved]
  - Hallucination, visual [Recovered/Resolved]
  - Irritability [Recovered/Resolved]
  - Hypersomnia [Recovered/Resolved]
  - Confusional state [Recovered/Resolved]
  - Delusional perception [Recovered/Resolved]
